FAERS Safety Report 17781071 (Version 1)
Quarter: 2020Q2

REPORT INFORMATION
  Report Type: Spontaneous
  Country: US (occurrence: US)
  Receive Date: 20200513
  Receipt Date: 20200513
  Transmission Date: 20200714
  Serious: Yes (Death)
  Sender: FDA-Public Use
  Company Number: US-ASTRAZENECA-2020SE61983

PATIENT
  Age: 48 Year
  Sex: Male

DRUGS (2)
  1. SODIUM ZIRCONIUM CYCLOSILICATE. [Suspect]
     Active Substance: SODIUM ZIRCONIUM CYCLOSILICATE
     Indication: HYPERKALAEMIA
     Dosage: 10.0G UNKNOWN
     Route: 048
  2. SODIUM ZIRCONIUM CYCLOSILICATE. [Suspect]
     Active Substance: SODIUM ZIRCONIUM CYCLOSILICATE
     Indication: HYPERKALAEMIA
     Dosage: 10G 8 MORE TIMES OVER THE NEXT 4 DAYS AT A MAXIMUM DOSE OF 10 G TID FOR TWO CONSECUTIVE DAYS. UNK...
     Route: 048

REACTIONS (3)
  - Abdominal compartment syndrome [Fatal]
  - Intestinal ischaemia [Fatal]
  - Multiple organ dysfunction syndrome [Fatal]
